FAERS Safety Report 6976966-2 (Version None)
Quarter: 2010Q3

REPORT INFORMATION
  Report Type: 
  Country: None (occurrence: None)
  Receive Date: 20100910
  Receipt Date: 20100902
  Transmission Date: 20110219
  Serious: Yes (Death)
  Sender: FDA-Public Use
  Company Number: US-ROCHE-710661

PATIENT
  Sex: Male

DRUGS (6)
  1. CAPECITABINE [Suspect]
     Dosage: ONE WEEK ON AND ONE WEEK OFF
     Route: 048
     Dates: start: 20100427, end: 20100515
  2. PRILOSEC [Concomitant]
     Dosage: 20 QD
     Route: 048
  3. ZOCOR [Concomitant]
     Dosage: 40 QD
     Route: 048
  4. ZOLOFT [Concomitant]
     Dosage: 100 QD
     Route: 048
  5. MAGNESIUM [Concomitant]
     Dosage: DOSE : 400
     Route: 048
  6. MARINOL [Concomitant]
     Dosage: DOSE 2.5
     Route: 048

REACTIONS (7)
  - BLOOD ALBUMIN DECREASED [None]
  - BLOOD ALKALINE PHOSPHATASE INCREASED [None]
  - GASTRIC CANCER [None]
  - HAEMOGLOBIN DECREASED [None]
  - MALIGNANT NEOPLASM PROGRESSION [None]
  - PLATELET COUNT DECREASED [None]
  - PNEUMONIA [None]
